FAERS Safety Report 17575742 (Version 1)
Quarter: 2020Q1

REPORT INFORMATION
  Report Type: Spontaneous
  Country: US (occurrence: US)
  Receive Date: 20200324
  Receipt Date: 20200324
  Transmission Date: 20200409
  Serious: Yes (Other)
  Sender: FDA-Public Use
  Company Number: US-PFIZER INC-2019451777

PATIENT
  Age: 31 Year
  Sex: Female

DRUGS (5)
  1. HUMIRA [Suspect]
     Active Substance: ADALIMUMAB
     Indication: JUVENILE IDIOPATHIC ARTHRITIS
     Dosage: UNK
     Route: 058
  2. METHOTREXATE SODIUM. [Suspect]
     Active Substance: METHOTREXATE SODIUM
     Dosage: UNK
  3. NAPROXEN. [Concomitant]
     Active Substance: NAPROXEN
     Dosage: UNK
  4. ENBREL [Suspect]
     Active Substance: ETANERCEPT
     Dosage: UNK
  5. HUMIRA [Suspect]
     Active Substance: ADALIMUMAB
     Indication: RHEUMATOID ARTHRITIS

REACTIONS (16)
  - Arthritis [Not Recovered/Not Resolved]
  - Arthropathy [Unknown]
  - Osteoporosis [Recovering/Resolving]
  - Joint range of motion decreased [Unknown]
  - Alopecia [Recovering/Resolving]
  - Synovial cyst [Not Recovered/Not Resolved]
  - Bone density abnormal [Not Recovered/Not Resolved]
  - Upper limb fracture [Recovered/Resolved]
  - Weight increased [Recovering/Resolving]
  - Chondropathy [Unknown]
  - Arthralgia [Unknown]
  - Bone disorder [Not Recovered/Not Resolved]
  - Back pain [Unknown]
  - Stress [Not Recovered/Not Resolved]
  - Osteoarthritis [Unknown]
  - Liver function test increased [Unknown]

NARRATIVE: CASE EVENT DATE: 2013
